FAERS Safety Report 8373231-6 (Version None)
Quarter: 2012Q2

REPORT INFORMATION
  Report Type: 
  Country: None (occurrence: None)
  Receive Date: 20120521
  Receipt Date: 20120513
  Transmission Date: 20120825
  Serious: No
  Sender: FDA-Public Use
  Company Number: US-BAYER-2012-047056

PATIENT
  Sex: Female

DRUGS (1)
  1. MIRENA [Suspect]
     Dosage: 20 ?G, UNK
     Route: 015
     Dates: start: 20110301

REACTIONS (7)
  - DIARRHOEA [None]
  - OVARIAN DISORDER [None]
  - FEELING ABNORMAL [None]
  - VAGINAL DISCHARGE [None]
  - BREAST PAIN [None]
  - MENSTRUATION DELAYED [None]
  - ABDOMINAL PAIN LOWER [None]
